FAERS Safety Report 7282333-7 (Version None)
Quarter: 2011Q1

REPORT INFORMATION
  Report Type: 
  Country: None (occurrence: None)
  Receive Date: 20110209
  Receipt Date: 20110127
  Transmission Date: 20110831
  Serious: Yes (Other)
  Sender: FDA-Public Use
  Company Number: US-RB-020323-11

PATIENT
  Age: 45 Year
  Sex: Female

DRUGS (1)
  1. DELSYM [Suspect]
     Dosage: PATIENT TOOK THE RECOMMENDED AMOUNT FOR ONE DOSE
     Route: 048

REACTIONS (9)
  - AGITATION [None]
  - TREMOR [None]
  - SPEECH DISORDER [None]
  - HALLUCINATION [None]
  - INSOMNIA [None]
  - PALPITATIONS [None]
  - EYE DISORDER [None]
  - DYSPHONIA [None]
  - BLOOD PRESSURE DECREASED [None]
